FAERS Safety Report 5090623-1 (Version None)
Quarter: 2006Q3

REPORT INFORMATION
  Report Type: 
  Country: None (occurrence: None)
  Receive Date: 20060823
  Receipt Date: 20060815
  Transmission Date: 20061208
  Serious: Yes (Other)
  Sender: FDA-Public Use
  Company Number: 235080K06USA

PATIENT
  Age: 43 Year
  Sex: Male
  Weight: 83.9154 kg

DRUGS (4)
  1. REBIF [Suspect]
     Indication: MULTIPLE SCLEROSIS
     Dosage: 44 MCG, 3 IN 1 WEEKS, SUBCUTANEOUS
     Route: 058
     Dates: start: 20050815
  2. GABAPENTIN [Concomitant]
  3. ETODOLAC [Concomitant]
  4. IBUPROFEN [Concomitant]

REACTIONS (2)
  - TUBERCULOSIS SKIN TEST POSITIVE [None]
  - VISUAL DISTURBANCE [None]
